FAERS Safety Report 10014033 (Version 2)
Quarter: 2014Q2

REPORT INFORMATION
  Report Type: Spontaneous
  Country: US (occurrence: US)
  Receive Date: 20140317
  Receipt Date: 20140409
  Transmission Date: 20141212
  Serious: No
  Sender: FDA-Public Use
  Company Number: US-009507513-1403USA002378

PATIENT
  Age: 18 Year
  Sex: 0
  Weight: 63.39 kg

DRUGS (2)
  1. NEXPLANON [Suspect]
     Dosage: UNK
     Dates: start: 20140227, end: 20140227
  2. NEXPLANON [Suspect]
     Dosage: UNK
     Dates: start: 20140227

REACTIONS (2)
  - Device difficult to use [Recovered/Resolved]
  - No adverse event [Unknown]
